FAERS Safety Report 18051720 (Version 1)
Quarter: 2020Q3

REPORT INFORMATION
  Report Type: Report from Study
  Country: IT (occurrence: IT)
  Receive Date: 20200722
  Receipt Date: 20200722
  Transmission Date: 20201103
  Serious: Yes (Other)
  Sender: FDA-Public Use
  Company Number: IT-TEVA-2020-IT-1803036

PATIENT
  Age: 41 Year
  Sex: Male

DRUGS (3)
  1. QUETIAPINE FUMARATE. [Suspect]
     Active Substance: QUETIAPINE FUMARATE
     Indication: DRUG ABUSE
     Dosage: 800 MG
     Route: 048
     Dates: start: 20200603, end: 20200603
  2. BROMAZEPAM [Suspect]
     Active Substance: BROMAZEPAM
     Indication: DRUG ABUSE
     Dosage: 1 DOSAGE FORMS
     Route: 048
     Dates: start: 20200603, end: 20200603
  3. CLONAZEPAM. [Suspect]
     Active Substance: CLONAZEPAM
     Indication: DRUG ABUSE
     Dosage: 10 MG
     Route: 047
     Dates: start: 20200603, end: 20200603

REACTIONS (2)
  - Sopor [Recovering/Resolving]
  - Drug abuse [Recovering/Resolving]

NARRATIVE: CASE EVENT DATE: 20200603
